FAERS Safety Report 5562681-9 (Version None)
Quarter: 2007Q4

REPORT INFORMATION
  Report Type: 
  Country: None (occurrence: None)
  Receive Date: 20071217
  Receipt Date: 20071214
  Transmission Date: 20080405
  Serious: Yes (Life-Threatening, Hospitalization)
  Sender: FDA-Public Use
  Company Number: DE-BRISTOL-MYERS SQUIBB COMPANY-13952999

PATIENT
  Age: 65 Year
  Sex: Female
  Weight: 65 kg

DRUGS (6)
  1. TAXOL [Suspect]
     Indication: BREAST CANCER
     Route: 042
     Dates: start: 20070911, end: 20071023
  2. CYCLOPHOSPHAMIDE [Suspect]
     Indication: BREAST CANCER
     Route: 042
     Dates: start: 20071106, end: 20071211
  3. EPIRUBICIN [Suspect]
     Indication: BREAST CANCER
     Route: 042
     Dates: start: 20070730, end: 20070828
  4. ZOLPIDEM TARTRATE [Concomitant]
     Route: 048
     Dates: start: 20070924, end: 20071005
  5. NEORECORMON [Concomitant]
     Dosage: 1 DOSAGE FORM= 30000(NO UNITS)
     Route: 058
     Dates: start: 20070911, end: 20071211
  6. NEULASTA [Concomitant]
     Route: 058
     Dates: start: 20070731, end: 20071212

REACTIONS (1)
  - FEBRILE NEUTROPENIA [None]
